FAERS Safety Report 8273492-8 (Version None)
Quarter: 2012Q2

REPORT INFORMATION
  Report Type: 
  Country: None (occurrence: None)
  Receive Date: 20120411
  Receipt Date: 20120330
  Transmission Date: 20120825
  Serious: Yes (Other)
  Sender: FDA-Public Use
  Company Number: US-JNJFOC-20120401076

PATIENT
  Sex: Female

DRUGS (2)
  1. METHOTREXATE [Concomitant]
  2. REMICADE [Suspect]
     Indication: PSORIATIC ARTHROPATHY
     Route: 042

REACTIONS (7)
  - MENTAL DISORDER [None]
  - FATIGUE [None]
  - UVEITIS [None]
  - CROHN'S DISEASE [None]
  - SURGERY [None]
  - SJOGREN'S SYNDROME [None]
  - DRUG INEFFECTIVE [None]
